FAERS Safety Report 23669080 (Version 1)
Quarter: 2024Q1

REPORT INFORMATION
  Report Type: Spontaneous
  Country: US (occurrence: None)
  Receive Date: 20240325
  Receipt Date: 20240325
  Transmission Date: 20240409
  Serious: No
  Sender: FDA-Public Use
  Company Number: None

PATIENT
  Sex: Female

DRUGS (7)
  1. AMBRISENTAN [Suspect]
     Active Substance: AMBRISENTAN
     Indication: Pulmonary arterial hypertension
     Dates: start: 20240224
  2. AMBRISENTAN [Concomitant]
  3. GABAPENTIN [Concomitant]
  4. PAXIL TAB [Concomitant]
  5. PREMARIN [Concomitant]
     Active Substance: ESTROGENS, CONJUGATED
  6. PROBIOTIC CAP [Concomitant]
  7. VITAMIN D3 CAP [Concomitant]

REACTIONS (2)
  - Infection [None]
  - Therapy interrupted [None]
